FAERS Safety Report 6506872-9 (Version None)
Quarter: 2009Q4

REPORT INFORMATION
  Report Type: 
  Country: None (occurrence: None)
  Receive Date: 20091221
  Receipt Date: 20091210
  Transmission Date: 20100525
  Serious: Yes (Other)
  Sender: FDA-Public Use
  Company Number: US-BAXTER-2009BH018783

PATIENT
  Age: 44 Year
  Sex: Female

DRUGS (12)
  1. GAMMAGARD LIQUID [Suspect]
     Indication: DECREASED IMMUNE RESPONSIVENESS
     Route: 042
     Dates: start: 20090301, end: 20090701
  2. LAMICTAL [Concomitant]
     Indication: DEPRESSION
     Route: 048
  3. KLONOPIN [Concomitant]
     Indication: ANXIETY
     Route: 048
  4. ZANTAC [Concomitant]
     Indication: ABDOMINAL DISCOMFORT
     Route: 048
  5. PROTONIX [Concomitant]
     Indication: ABDOMINAL DISCOMFORT
     Route: 048
  6. ULTRAM [Concomitant]
     Indication: PAIN
     Route: 048
  7. VICODIN [Concomitant]
     Indication: PAIN
     Route: 048
  8. BENADRYL [Concomitant]
     Indication: INSOMNIA
     Route: 048
  9. ASPIRIN [Concomitant]
     Route: 048
  10. FISH OIL [Concomitant]
     Indication: MEDICAL DIET
     Route: 048
  11. ASCORBIC ACID [Concomitant]
     Indication: VITAMIN SUPPLEMENTATION
     Route: 048
  12. VITAMIN D [Concomitant]
     Indication: VITAMIN SUPPLEMENTATION
     Route: 048

REACTIONS (1)
  - PARALYSIS [None]
